FAERS Safety Report 17095579 (Version 3)
Quarter: 2021Q1

REPORT INFORMATION
  Report Type: Report from Study
  Country: US (occurrence: US)
  Receive Date: 20191201
  Receipt Date: 20210322
  Transmission Date: 20210419
  Serious: Yes (Other)
  Sender: FDA-Public Use
  Company Number: US-B.I. PHARMACEUTICALS,INC./RIDGEFIELD-2019-MR-111222

PATIENT
  Age: 73 Year
  Sex: Female

DRUGS (21)
  1. ESBRIET [Concomitant]
     Active Substance: PIRFENIDONE
     Indication: PRODUCT USED FOR UNKNOWN INDICATION
     Route: 065
  2. GLUCOPHAGE [Concomitant]
     Active Substance: METFORMIN HYDROCHLORIDE
     Indication: PRODUCT USED FOR UNKNOWN INDICATION
     Dosage: TAKE 1000 MG BY MOUTH DAILY WITH BREAKFAST
     Route: 048
  3. DELTASONE [Concomitant]
     Active Substance: PREDNISONE
     Dates: start: 20191202
  4. OFEV [Suspect]
     Active Substance: NINTEDANIB
     Route: 048
  5. LISINOPRIL. [Concomitant]
     Active Substance: LISINOPRIL
     Indication: PRODUCT USED FOR UNKNOWN INDICATION
     Dosage: TAKE 5 MG BY MOUTH DAILY
     Route: 048
  6. PIRFENIDONE. [Concomitant]
     Active Substance: PIRFENIDONE
     Indication: PRODUCT USED FOR UNKNOWN INDICATION
     Dosage: TAKE 1 TABLET BY MOUTH 3 TIMES A DAY
     Route: 048
     Dates: start: 20200617
  7. ASPIRIN [ACETYLSALICYLIC ACID] [Concomitant]
     Active Substance: ASPIRIN
     Indication: PRODUCT USED FOR UNKNOWN INDICATION
     Dosage: TAKE 81 MG BY MOUTH DAILY
     Route: 048
  8. ESTRACE [Concomitant]
     Active Substance: ESTRADIOL
     Indication: PRODUCT USED FOR UNKNOWN INDICATION
     Dosage: TAKE 0.25 MG BY MOUTH DAILY
     Route: 048
  9. CRESTOR [Concomitant]
     Active Substance: ROSUVASTATIN CALCIUM
     Indication: PRODUCT USED FOR UNKNOWN INDICATION
     Dosage: TAKE 10 MG BY MOUTH DAILY
     Route: 048
  10. TENORMIN [Concomitant]
     Active Substance: ATENOLOL
     Indication: PRODUCT USED FOR UNKNOWN INDICATION
     Dosage: TAKE 1 TABLET BY MOUTH
     Route: 048
  11. ANTIVERT [Concomitant]
     Active Substance: MECLIZINE HYDROCHLORIDE
     Indication: PRODUCT USED FOR UNKNOWN INDICATION
     Dosage: TAKE 12.5 MG BY MOUTH DAILY
     Route: 048
     Dates: start: 20190501
  12. ELAVIL [AMITRIPTYLINE PAMOATE] [Concomitant]
     Active Substance: AMITRIPTYLINE PAMOATE
     Indication: PRODUCT USED FOR UNKNOWN INDICATION
     Dosage: TAKE 1 TABLET (50 MG) BY MOUTH NIGHTLY
     Route: 048
     Dates: start: 20190904
  13. PRILOSEC [Concomitant]
     Active Substance: OMEPRAZOLE MAGNESIUM
     Indication: PRODUCT USED FOR UNKNOWN INDICATION
     Dosage: TAKE 20 MG BY MOUTH
     Route: 048
  14. OFEV [Suspect]
     Active Substance: NINTEDANIB
     Indication: IDIOPATHIC PULMONARY FIBROSIS
     Dosage: 100 MG BID
     Route: 048
     Dates: start: 20190703, end: 20191012
  15. OFEV [Suspect]
     Active Substance: NINTEDANIB
     Route: 048
     Dates: start: 20191015
  16. NORVASC [Concomitant]
     Active Substance: AMLODIPINE BESYLATE
     Indication: PRODUCT USED FOR UNKNOWN INDICATION
     Dosage: TAKE 5 MG BY MOUTH DAILY
     Route: 048
  17. PIRFENIDONE. [Concomitant]
     Active Substance: PIRFENIDONE
     Route: 048
     Dates: start: 20200130
  18. ALBUTEROL [SALBUTAMOL] [Concomitant]
     Active Substance: ALBUTEROL
     Indication: PRODUCT USED FOR UNKNOWN INDICATION
     Dosage: 90 MCG/ACTUATION?INHALE BY MOUTH EVERY 6 HOURS AS NEEDED
     Route: 055
  19. BUSPAR [Concomitant]
     Active Substance: BUSPIRONE HYDROCHLORIDE
     Indication: PRODUCT USED FOR UNKNOWN INDICATION
     Dosage: TAKE 15 MG BY MOUTH TWO TIMES A DAY
     Route: 048
     Dates: start: 20190428
  20. AUGMENTIN [Concomitant]
     Active Substance: AMOXICILLIN\CLAVULANATE POTASSIUM
     Indication: PRODUCT USED FOR UNKNOWN INDICATION
     Route: 065
  21. DELTASONE [Concomitant]
     Active Substance: PREDNISONE
     Indication: PRODUCT USED FOR UNKNOWN INDICATION
     Dosage: TAKE 1 TABLET (5 MG) BY MOUTH DAILY WITH BREAKFAST
     Route: 048
     Dates: start: 20200610

REACTIONS (16)
  - Cough [Unknown]
  - Anal incontinence [Not Recovered/Not Resolved]
  - Fatigue [Unknown]
  - Food intolerance [Recovering/Resolving]
  - Abdominal pain upper [Not Recovered/Not Resolved]
  - Hand fracture [Unknown]
  - Diarrhoea [Recovered/Resolved]
  - Seasonal allergy [Unknown]
  - Weight decreased [Recovering/Resolving]
  - Fall [Unknown]
  - Night sweats [Unknown]
  - Nausea [Recovered/Resolved with Sequelae]
  - Diarrhoea [Not Recovered/Not Resolved]
  - Rash pruritic [Unknown]
  - Constipation [Not Recovered/Not Resolved]
  - Enzyme level increased [Unknown]

NARRATIVE: CASE EVENT DATE: 2019
